FAERS Safety Report 15962531 (Version 2)
Quarter: 2019Q1

REPORT INFORMATION
  Report Type: Report from Study
  Country: CA (occurrence: CA)
  Receive Date: 20190214
  Receipt Date: 20190225
  Transmission Date: 20190417
  Serious: Yes (Life-Threatening, Other)
  Sender: FDA-Public Use
  Company Number: PHHY2018CA158454

PATIENT
  Age: 36 Year
  Sex: Female

DRUGS (7)
  1. XOLAIR [Suspect]
     Active Substance: OMALIZUMAB
     Indication: CHRONIC SPONTANEOUS URTICARIA
     Dosage: 300 MG, EVERY 4 WEEKS
     Route: 058
     Dates: start: 20181114
  2. DIAZEPAM. [Suspect]
     Active Substance: DIAZEPAM
     Indication: PRODUCT USED FOR UNKNOWN INDICATION
     Dosage: 1 DF, TID
     Route: 065
     Dates: start: 2015
  3. TRAZODONE [Concomitant]
     Active Substance: TRAZODONE HYDROCHLORIDE
     Indication: PRODUCT USED FOR UNKNOWN INDICATION
     Dosage: 1 DF, QD
     Route: 065
     Dates: start: 2015
  4. BENADRYL [Concomitant]
     Active Substance: DIPHENHYDRAMINE HYDROCHLORIDE
     Indication: PRODUCT USED FOR UNKNOWN INDICATION
     Dosage: 5 DF, QD
     Route: 048
     Dates: start: 201505
  5. CLONAZEPAM. [Suspect]
     Active Substance: CLONAZEPAM
     Indication: PRODUCT USED FOR UNKNOWN INDICATION
     Dosage: 1 DF, TID
     Route: 048
     Dates: start: 2015
  6. ZOLOFT [Concomitant]
     Active Substance: SERTRALINE HYDROCHLORIDE
     Indication: PRODUCT USED FOR UNKNOWN INDICATION
     Dosage: 1 DF, QD
     Route: 065
     Dates: start: 2015
  7. SEROQUEL [Concomitant]
     Active Substance: QUETIAPINE FUMARATE
     Indication: PRODUCT USED FOR UNKNOWN INDICATION
     Dosage: 1 DF, QD
     Route: 065
     Dates: start: 2015

REACTIONS (18)
  - Feeling hot [Unknown]
  - Pneumonia [Unknown]
  - Swollen tongue [Unknown]
  - Dysphagia [Unknown]
  - Oxygen saturation decreased [Unknown]
  - Nausea [Recovering/Resolving]
  - Sensation of foreign body [Unknown]
  - Dyspnoea [Unknown]
  - Haemorrhage [Unknown]
  - Heart rate abnormal [Recovering/Resolving]
  - Anaphylactic reaction [Unknown]
  - Abdominal distension [Not Recovered/Not Resolved]
  - Oral discomfort [Unknown]
  - Eye swelling [Recovering/Resolving]
  - Hereditary angioedema [Unknown]
  - Abdominal pain [Not Recovered/Not Resolved]
  - Erythema [Unknown]
  - Tongue discolouration [Unknown]

NARRATIVE: CASE EVENT DATE: 20181114
